FAERS Safety Report 5481454-9 (Version None)
Quarter: 2007Q4

REPORT INFORMATION
  Report Type: 
  Country: None (occurrence: None)
  Receive Date: 20071010
  Receipt Date: 20071005
  Transmission Date: 20080405
  Serious: Yes (Other)
  Sender: FDA-Public Use
  Company Number: D0054740A

PATIENT
  Age: 86 Year
  Sex: Male

DRUGS (4)
  1. SEROXAT [Suspect]
     Dosage: 20MG PER DAY
     Route: 048
  2. ASPIRIN [Concomitant]
     Route: 065
  3. ACE-INHIBITOR [Concomitant]
     Route: 048
  4. BETA-BLOCKER [Concomitant]
     Route: 048

REACTIONS (3)
  - HYPONATRAEMIA [None]
  - INAPPROPRIATE ANTIDIURETIC HORMONE SECRETION [None]
  - POLYURIA [None]
